FAERS Safety Report 6976960-1 (Version None)
Quarter: 2010Q3

REPORT INFORMATION
  Report Type: 
  Country: None (occurrence: None)
  Receive Date: 20100910
  Receipt Date: 20090507
  Transmission Date: 20110219
  Serious: No
  Sender: FDA-Public Use
  Company Number: US-WYE-H09269209

PATIENT
  Sex: Male
  Weight: 75.36 kg

DRUGS (2)
  1. PRISTIQ [Suspect]
     Indication: DEPRESSION
     Route: 048
     Dates: start: 20090505
  2. KLONOPIN [Concomitant]

REACTIONS (4)
  - FATIGUE [None]
  - MIDDLE INSOMNIA [None]
  - SOMNOLENCE [None]
  - TERMINAL INSOMNIA [None]
